FAERS Safety Report 9869049 (Version 2)
Quarter: 2014Q1

REPORT INFORMATION
  Report Type: Spontaneous
  Country: US (occurrence: US)
  Receive Date: 20140205
  Receipt Date: 20140320
  Transmission Date: 20141002
  Serious: Yes (Hospitalization)
  Sender: FDA-Public Use
  Company Number: US-BIOGENIDEC-2014BI010608

PATIENT
  Age: 61 Year
  Sex: Female

DRUGS (1)
  1. TYSABRI [Suspect]
     Indication: MULTIPLE SCLEROSIS
     Route: 042
     Dates: start: 20131112

REACTIONS (11)
  - Major depression [Unknown]
  - Anxiety [Unknown]
  - Tremor [Recovered/Resolved]
  - General physical health deterioration [Unknown]
  - Memory impairment [Unknown]
  - Dysgraphia [Unknown]
  - Nervous system disorder [Unknown]
  - Increased tendency to bruise [Not Recovered/Not Resolved]
  - Poor venous access [Not Recovered/Not Resolved]
  - Vascular rupture [Not Recovered/Not Resolved]
  - Abasia [Recovered/Resolved]
